FAERS Safety Report 4346519-3 (Version None)
Quarter: 2004Q2

REPORT INFORMATION
  Report Type: 
  Country: None (occurrence: None)
  Receive Date: 20040426
  Receipt Date: 20031106
  Transmission Date: 20050107
  Serious: No
  Sender: FDA-Public Use
  Company Number: US-BRISTOL-MYERS SQUIBB COMPANY-12430351

PATIENT
  Age: 66 Year
  Sex: Female
  Weight: 72 kg

DRUGS (5)
  1. CARBOPLATIN [Suspect]
     Indication: LUNG NEOPLASM MALIGNANT
     Route: 042
     Dates: start: 20031106, end: 20031106
  2. GEMZAR [Concomitant]
     Route: 042
     Dates: start: 20031106, end: 20031106
  3. ANZEMET [Concomitant]
     Indication: PREMEDICATION
     Route: 042
     Dates: start: 20031106, end: 20031106
  4. DECADRON [Concomitant]
     Indication: PREMEDICATION
     Route: 042
     Dates: start: 20031106, end: 20031106
  5. EPOGEN [Concomitant]
     Indication: PREMEDICATION
     Route: 058
     Dates: start: 20031106, end: 20031106

REACTIONS (1)
  - MEDICATION ERROR [None]
